FAERS Safety Report 19029998 (Version 2)
Quarter: 2021Q2

REPORT INFORMATION
  Report Type: Report from Study
  Country: US (occurrence: US)
  Receive Date: 20210318
  Receipt Date: 20210415
  Transmission Date: 20210717
  Serious: No
  Sender: FDA-Public Use
  Company Number: NVSC2021US057470

PATIENT
  Age: 78 Year
  Sex: Female

DRUGS (1)
  1. PIQRAY [Suspect]
     Active Substance: ALPELISIB
     Indication: BREAST CANCER
     Dosage: 150 MG, QD
     Route: 048

REACTIONS (4)
  - Herpes zoster [Unknown]
  - Rash [Recovering/Resolving]
  - Product dose omission issue [Unknown]
  - Product supply issue [Unknown]
